FAERS Safety Report 24405381 (Version 2)
Quarter: 2024Q4

REPORT INFORMATION
  Report Type: Spontaneous
  Country: US (occurrence: US)
  Receive Date: 20241007
  Receipt Date: 20241010
  Transmission Date: 20250115
  Serious: No
  Sender: CHATTEM
  Company Number: US-OPELLA-2024OHG034174

PATIENT

DRUGS (2)
  1. ALLEGRA ALLERGY [Suspect]
     Active Substance: FEXOFENADINE HYDROCHLORIDE
     Indication: Hypersensitivity
     Dosage: UPC: 4116741206
  2. ALLEGRA ALLERGY [Suspect]
     Active Substance: FEXOFENADINE HYDROCHLORIDE
     Dosage: UPC: 4116741206

REACTIONS (4)
  - Drug ineffective [Unknown]
  - Product physical issue [Unknown]
  - Product expiration date issue [Unknown]
  - No adverse event [Unknown]
